FAERS Safety Report 20783233 (Version 1)
Quarter: 2022Q2

REPORT INFORMATION
  Report Type: Spontaneous
  Country: SG (occurrence: SG)
  Receive Date: 20220504
  Receipt Date: 20220504
  Transmission Date: 20220721
  Serious: Yes (Other)
  Sender: FDA-Public Use
  Company Number: SG-IGSA-BIG0018682

PATIENT
  Age: 36 Year
  Sex: Male
  Weight: 60 kg

DRUGS (7)
  1. HYPERRAB S/D [Suspect]
     Active Substance: HUMAN RABIES VIRUS IMMUNE GLOBULIN
     Indication: Rabies immunisation
     Dosage: 1200 INTERNATIONAL UNIT, SINGLE
     Route: 059
     Dates: start: 20130418, end: 20130418
  2. HYPERRAB S/D [Suspect]
     Active Substance: HUMAN RABIES VIRUS IMMUNE GLOBULIN
     Dosage: UNK
     Route: 058
  3. RABIPUR [Concomitant]
     Active Substance: RABIES VIRUS STRAIN FLURY LEP ANTIGEN (PROPIOLACTONE INACTIVATED)
  4. ZOPICLONE [Concomitant]
     Active Substance: ZOPICLONE
  5. AMITRIPTYLINE [Concomitant]
     Active Substance: AMITRIPTYLINE
  6. EPILIM [Concomitant]
     Active Substance: VALPROATE SODIUM
  7. VITAMIN D3 [Concomitant]
     Active Substance: CHOLECALCIFEROL

REACTIONS (21)
  - Skin exfoliation [Recovered/Resolved]
  - Rash erythematous [Recovered/Resolved]
  - Paraesthesia [Recovered/Resolved]
  - Anxiety [Recovered/Resolved]
  - Acne [Recovered/Resolved]
  - Lymphadenopathy [Recovered/Resolved]
  - Ear pain [Unknown]
  - Mass [Recovered/Resolved]
  - Tinnitus [Not Recovered/Not Resolved]
  - Deafness [Unknown]
  - Insomnia [Unknown]
  - Pain [Unknown]
  - Feeling cold [Unknown]
  - Night sweats [Unknown]
  - Headache [Unknown]
  - Blindness [Unknown]
  - Diplopia [Unknown]
  - Feeling abnormal [Unknown]
  - White matter lesion [Unknown]
  - Variant Creutzfeldt-Jakob disease [Unknown]
  - Suspected transmission of an infectious agent via product [Unknown]

NARRATIVE: CASE EVENT DATE: 20130401
